FAERS Safety Report 5572932-2 (Version None)
Quarter: 2007Q4

REPORT INFORMATION
  Report Type: 
  Country: None (occurrence: None)
  Receive Date: 20071219
  Receipt Date: 20071219
  Transmission Date: 20080405
  Serious: Yes (Death, Life-Threatening, Hospitalization, Disabling)
  Sender: FDA-Public Use
  Company Number: None

PATIENT
  Age: 52 Year
  Sex: Male
  Weight: 83.9154 kg

DRUGS (10)
  1. HALOPERIDOL [Suspect]
     Dosage: 15MG PO
     Route: 048
  2. HALOPERIDOL [Suspect]
     Dosage: 5MG IM
     Route: 030
  3. ZOCOR [Concomitant]
  4. LORAZEPAM [Concomitant]
  5. HALDOL [Concomitant]
  6. ANAFRANIL [Concomitant]
  7. BENZTROPINE [Concomitant]
  8. AZITHROMYCIN [Concomitant]
  9. LEVAQUIN [Concomitant]
  10. ATORVASTATIN [Concomitant]

REACTIONS (6)
  - AGITATION [None]
  - BLOOD CREATINE PHOSPHOKINASE INCREASED [None]
  - LOSS OF CONSCIOUSNESS [None]
  - MUSCLE DISORDER [None]
  - PNEUMONIA [None]
  - RESPIRATORY ARREST [None]
